FAERS Safety Report 8313246 (Version 2)
Quarter: 2012Q4

REPORT INFORMATION
  Report Type: 
  Country: US (occurrence: US)
  Receive Date: 20111228
  Receipt Date: 20121206
  Transmission Date: 20130627
  Serious: Yes (Death)
  Sender: FDA-Public Use
  Company Number: US-SANOFI-AVENTIS-2011SA084654

PATIENT
  Age: 82 Year
  Sex: Female

DRUGS (4)
  1. DILTIAZEM HYDROCHLORIDE [Suspect]
     Indication: SUICIDE
     Dosage: extended
     Route: 048
  2. CHLORPROMAZINE [Suspect]
     Indication: SUICIDE
     Route: 048
  3. CLOPIDOGREL BISULFATE [Suspect]
     Indication: SUICIDE
     Route: 048
  4. METFORMIN HYDROCHLORIDE/SITAGLIPTIN PHOSPHATE [Suspect]
     Indication: SUICIDE
     Route: 048

REACTIONS (2)
  - Completed suicide [Fatal]
  - Intentional overdose [Fatal]
